FAERS Safety Report 9046547 (Version 1)
Quarter: 2013Q1

REPORT INFORMATION
  Report Type: Spontaneous
  Country: US (occurrence: None)
  Receive Date: 20130128
  Receipt Date: 20130128
  Transmission Date: 20140127
  Serious: Yes (Congenital Anomaly)
  Sender: FDA-Public Use
  Company Number: None

PATIENT
  Age: 35 Year
  Sex: Female
  Weight: 108.86 kg

DRUGS (1)
  1. METHERGINE [Suspect]
     Indication: ABORTION INCOMPLETE
     Dates: start: 20090621, end: 20090621

REACTIONS (3)
  - Drug prescribing error [None]
  - Contraindication to medical treatment [None]
  - Exposure during pregnancy [None]
